FAERS Safety Report 6043763-4 (Version None)
Quarter: 2009Q1

REPORT INFORMATION
  Report Type: 
  Country: None (occurrence: None)
  Receive Date: 20090120
  Receipt Date: 20090112
  Transmission Date: 20090719
  Serious: Yes (Other)
  Sender: FDA-Public Use
  Company Number: PHEH2006US13759

PATIENT
  Sex: Female

DRUGS (13)
  1. ZOMETA [Suspect]
     Indication: METASTASES TO BONE
     Dosage: 4 MG, Q4WEEKS
     Route: 042
     Dates: start: 20030301, end: 20060929
  2. ZOMETA [Suspect]
     Indication: BREAST CANCER METASTATIC
  3. AROMASIN [Concomitant]
     Indication: BREAST CANCER
     Dosage: 25 MG, QD
     Route: 048
     Dates: start: 20050822
  4. MULTI-VITAMINS [Concomitant]
  5. LIPITOR [Concomitant]
  6. TAXOL [Concomitant]
     Indication: BREAST CANCER
     Dosage: 130 MG, QW
     Dates: start: 20040121, end: 20050513
  7. TAXOTERE [Concomitant]
     Indication: BREAST CANCER
     Dosage: 75 MG/M2, Q 3 WEEKS
     Dates: start: 20050526, end: 20050727
  8. TAMOXIFEN CITRATE [Concomitant]
     Indication: BREAST CANCER
     Dosage: 10 MG, QD
     Route: 048
     Dates: start: 20011019, end: 20030730
  9. ARIMIDEX [Concomitant]
     Indication: BREAST CANCER
     Dosage: 1 MG, QD
     Route: 048
     Dates: start: 20030730, end: 20040319
  10. FASLODEX [Concomitant]
     Indication: BREAST CANCER
     Dosage: 250 MG, QMO
     Route: 030
     Dates: start: 20040319, end: 20041230
  11. METHOTREXATE [Concomitant]
     Indication: BREAST CANCER
     Dosage: UNK
     Dates: start: 20011109, end: 20020403
  12. FLUOROURACIL [Concomitant]
     Indication: BREAST CANCER
     Dosage: UNK
     Dates: start: 20011109, end: 20020403
  13. LEUCOVORIN CALCIUM [Concomitant]
     Indication: BREAST CANCER
     Dosage: UNK
     Dates: start: 20011109, end: 20020403

REACTIONS (7)
  - BONE DISORDER [None]
  - DENTAL CARIES [None]
  - GINGIVAL INFECTION [None]
  - GINGIVAL OPERATION [None]
  - GINGIVAL ULCERATION [None]
  - OSTEONECROSIS [None]
  - TOOTH EXTRACTION [None]
